FAERS Safety Report 4465409-9 (Version None)
Quarter: 2004Q4

REPORT INFORMATION
  Report Type: 
  Country: None (occurrence: None)
  Receive Date: 20041004
  Receipt Date: 20040924
  Transmission Date: 20050328
  Serious: Yes (Life-Threatening, Hospitalization)
  Sender: FDA-Public Use
  Company Number: FRPFM-C-20040512

PATIENT
  Age: 54 Year
  Sex: Female

DRUGS (4)
  1. NAVELBINE [Suspect]
     Dosage: 60MGM2 CYCLIC
     Route: 048
     Dates: start: 20040409, end: 20040906
  2. XELODA [Suspect]
     Dosage: 1000MGM2 CYCLIC
     Route: 048
     Dates: start: 20040409, end: 20040906
  3. LOPERAMIDE HCL [Concomitant]
  4. OMEPRAZOLE [Concomitant]
     Route: 048
     Dates: start: 20040703

REACTIONS (8)
  - ANAEMIA [None]
  - CEREBROVASCULAR ACCIDENT [None]
  - DIARRHOEA [None]
  - DYSPNOEA [None]
  - FACIAL PALSY [None]
  - HEMIPLEGIA [None]
  - HYPOKALAEMIA [None]
  - MALNUTRITION [None]
